FAERS Safety Report 24820891 (Version 1)
Quarter: 2025Q1

REPORT INFORMATION
  Report Type: Spontaneous
  Country: US (occurrence: US)
  Receive Date: 20250108
  Receipt Date: 20250108
  Transmission Date: 20250409
  Serious: No
  Sender: SANOFI AVENTIS
  Company Number: US-SA-2024SA355818

PATIENT
  Age: 80 Year
  Sex: Female
  Weight: 63.64 kg

DRUGS (25)
  1. DUPIXENT [Suspect]
     Active Substance: DUPILUMAB
     Indication: Dermatitis atopic
     Dosage: 300 MG, QOW
     Route: 058
     Dates: start: 20241114
  2. FEXOFENADINE HYDROCHLORIDE [Concomitant]
     Active Substance: FEXOFENADINE HYDROCHLORIDE
  3. MINERALS\VITAMINS [Concomitant]
     Active Substance: MINERALS\VITAMINS
  4. PROLIA [Concomitant]
     Active Substance: DENOSUMAB
  5. METHENAMINE HIPPURATE [Concomitant]
     Active Substance: METHENAMINE HIPPURATE
  6. SYNTHROID [Concomitant]
     Active Substance: LEVOTHYROXINE SODIUM
  7. TACROLIMUS [Concomitant]
     Active Substance: TACROLIMUS
  8. CALCIUM [Concomitant]
     Active Substance: CALCIUM
  9. CLOBETASOL PROPIONATE [Concomitant]
     Active Substance: CLOBETASOL PROPIONATE
  10. BENZONATATE [Concomitant]
     Active Substance: BENZONATATE
  11. PROMETHAZINE DM [Concomitant]
     Active Substance: DEXTROMETHORPHAN HYDROBROMIDE\PROMETHAZINE HYDROCHLORIDE
  12. VALACYCLOVIR [Concomitant]
     Active Substance: VALACYCLOVIR HYDROCHLORIDE
  13. XELJANZ XR [Concomitant]
     Active Substance: TOFACITINIB CITRATE
  14. MODERNA COVID-19 VACCINE [Concomitant]
     Active Substance: ELASOMERAN
  15. AZITHROMYCIN [Concomitant]
     Active Substance: AZITHROMYCIN
  16. FOLIC ACID [Concomitant]
     Active Substance: FOLIC ACID
  17. FOSINOPRIL SODIUM [Concomitant]
     Active Substance: FOSINOPRIL SODIUM
  18. ROPINIROLE HYDROCHLORIDE [Concomitant]
     Active Substance: ROPINIROLE HYDROCHLORIDE
  19. SOLIFENACIN SUCCINATE [Concomitant]
     Active Substance: SOLIFENACIN SUCCINATE
  20. FLUOCINONIDE [Concomitant]
     Active Substance: FLUOCINONIDE
  21. ATORVASTATIN CALCIUM [Concomitant]
     Active Substance: ATORVASTATIN CALCIUM
  22. OMEPRAZOLE [Concomitant]
     Active Substance: OMEPRAZOLE
  23. IBUPROFEN [Concomitant]
     Active Substance: IBUPROFEN
  24. VITAMIN D3 [Concomitant]
     Active Substance: CHOLECALCIFEROL
  25. KLOR-CON [Concomitant]
     Active Substance: POTASSIUM CHLORIDE

REACTIONS (3)
  - Nasopharyngitis [Recovering/Resolving]
  - Cough [Recovering/Resolving]
  - Respiratory tract congestion [Recovering/Resolving]

NARRATIVE: CASE EVENT DATE: 20241221
